FAERS Safety Report 8806132 (Version 1)
Quarter: 2012Q4

REPORT INFORMATION
  Report Type: 
  Country: FR (occurrence: FR)
  Receive Date: 20120925
  Receipt Date: 20120925
  Transmission Date: 20130627
  Serious: Yes (Disabling, Other)
  Sender: FDA-Public Use
  Company Number: PHHY2012FR082512

PATIENT
  Sex: Male

DRUGS (9)
  1. LESCOL [Suspect]
     Indication: DYSLIPIDAEMIA
     Dosage: 10 mg, daily
     Route: 048
     Dates: start: 20120510, end: 20120525
  2. CRESTOR [Suspect]
     Indication: DYSLIPIDAEMIA
     Dosage: 10 mg, daily
     Route: 048
     Dates: start: 20120203, end: 201204
  3. CRESTOR [Suspect]
     Dosage: 5 mg, daily
     Route: 048
     Dates: start: 201204, end: 20120424
  4. TAHOR [Suspect]
     Indication: DYSLIPIDAEMIA
     Dosage: 80 mg, daily
     Route: 048
     Dates: start: 20111218, end: 20111227
  5. TAHOR [Suspect]
     Dosage: 40 mg, daily
     Route: 048
     Dates: start: 20111227, end: 201202
  6. TAHOR [Suspect]
     Dosage: 10 mg, daily
     Route: 048
     Dates: start: 20120424, end: 20120510
  7. BETA BLOCKING AGENTS [Concomitant]
  8. EFIENT [Concomitant]
  9. KARDEGIC [Concomitant]

REACTIONS (5)
  - Peripheral sensory neuropathy [Unknown]
  - Decreased vibratory sense [Unknown]
  - Hyporeflexia [Unknown]
  - Myalgia [Not Recovered/Not Resolved]
  - Blood creatine phosphokinase increased [Not Recovered/Not Resolved]
